FAERS Safety Report 9885554 (Version 1)
Quarter: 2014Q1

REPORT INFORMATION
  Report Type: Spontaneous
  Country: US (occurrence: US)
  Receive Date: 20140210
  Receipt Date: 20140210
  Transmission Date: 20141002
  Serious: Yes (Other)
  Sender: FDA-Public Use
  Company Number: US-BAYER-2014-019618

PATIENT
  Age: 41 Year
  Sex: Female

DRUGS (6)
  1. YASMIN [Suspect]
  2. YAZ [Suspect]
  3. PROCHLORPERAZINE [Concomitant]
     Dosage: 10 MG, UNK
     Route: 048
  4. CEPHALEXIN [Concomitant]
     Dosage: 500 MG, UNK
     Route: 048
  5. OXYCODONE [Concomitant]
     Dosage: 5 MG, UNK
     Route: 048
  6. IBUPROFEN [Concomitant]

REACTIONS (1)
  - Deep vein thrombosis [None]
